FAERS Safety Report 8367272-2 (Version None)
Quarter: 2012Q2

REPORT INFORMATION
  Report Type: 
  Country: None (occurrence: None)
  Receive Date: 20120517
  Receipt Date: 20120503
  Transmission Date: 20120825
  Serious: Yes (Other)
  Sender: FDA-Public Use
  Company Number: DE-BRISTOL-MYERS SQUIBB COMPANY-16464315

PATIENT
  Age: 40 Year
  Sex: Female
  Weight: 70 kg

DRUGS (5)
  1. NORVIR [Suspect]
     Indication: HIV INFECTION
     Dosage: NORVIR SMOOTH CAPS 100 MG 1 IN THE MORNING
     Route: 048
     Dates: start: 20090924, end: 20120210
  2. REYATAZ [Suspect]
     Indication: HIV INFECTION
     Dosage: REYATAZ 150MG HARD CAPS 1 IN THE MORNING
     Route: 048
     Dates: start: 20090924, end: 20120210
  3. ABACAVIR SULFATE/LAMIVUDINE [Suspect]
     Indication: HIV INFECTION
     Dosage: 1DF=600/300MG FILM COATED TABS 1 IN THE MORNING
     Route: 048
     Dates: start: 20090924
  4. EPIVIR [Concomitant]
     Dosage: 60 PIECES FILM COATED TABS
  5. ZIAGEN [Concomitant]
     Dosage: 60 PIECES FILM COATED TABS

REACTIONS (2)
  - TUBULOINTERSTITIAL NEPHRITIS [None]
  - RENAL FAILURE [None]
